FAERS Safety Report 4726499-9 (Version None)
Quarter: 2005Q3

REPORT INFORMATION
  Report Type: 
  Country: None (occurrence: None)
  Receive Date: 20050725
  Receipt Date: 20050523
  Transmission Date: 20060218
  Serious: No
  Sender: FDA-Public Use
  Company Number: USA050597530

PATIENT
  Age: 10 Year
  Sex: Male

DRUGS (1)
  1. STRATTERA [Suspect]
     Dosage: 50 MG
     Dates: start: 20040101, end: 20040301

REACTIONS (4)
  - ANGER [None]
  - DEPRESSION [None]
  - FLAT AFFECT [None]
  - HOSTILITY [None]
